FAERS Safety Report 9403817 (Version 1)
Quarter: 2013Q3

REPORT INFORMATION
  Report Type: Spontaneous
  Country: NZ (occurrence: None)
  Receive Date: 20130712
  Receipt Date: 20130712
  Transmission Date: 20140515
  Serious: Yes (Other)
  Sender: FDA-Public Use
  Company Number: NSR_01177_2013

PATIENT
  Age: 26 Year
  Sex: Female

DRUGS (2)
  1. TRAMADOL (TRAMADOL) [Suspect]
     Indication: PRODUCT USED FOR UNKNOWN INDICATION
  2. CITALOPRAM (CITALOPRAM) [Suspect]
     Indication: PRODUCT USED FOR UNKNOWN INDICATION

REACTIONS (7)
  - Intentional overdose [None]
  - Heart rate increased [None]
  - Coma scale abnormal [None]
  - Tremor [None]
  - Hyperhidrosis [None]
  - Clonus [None]
  - Serotonin syndrome [None]
